FAERS Safety Report 21012371 (Version 8)
Quarter: 2023Q2

REPORT INFORMATION
  Report Type: Report from Study
  Country: CA (occurrence: CA)
  Receive Date: 20220627
  Receipt Date: 20230613
  Transmission Date: 20230722
  Serious: Yes (Hospitalization, Other)
  Sender: FDA-Public Use
  Company Number: CA-VER-202200340

PATIENT
  Age: 85 Year
  Sex: Male

DRUGS (1)
  1. TRIPTORELIN PAMOATE [Suspect]
     Active Substance: TRIPTORELIN PAMOATE
     Indication: Prostate cancer
     Dosage: 1) 16-DEC-2021 - 16-DEC-2021 (1 DAYS)?2) 07-MAR-2022 - 07-MAR-2022 (1 DAYS)?3) 06-JUN-2022 - 06-JUN-
     Route: 030

REACTIONS (5)
  - Femur fracture [Unknown]
  - Blood pressure systolic increased [Unknown]
  - Fall [Unknown]
  - Hospitalisation [Unknown]
  - Drug dose omission by device [Unknown]

NARRATIVE: CASE EVENT DATE: 20220525
